FAERS Safety Report 6537737-4 (Version None)
Quarter: 2010Q1

REPORT INFORMATION
  Report Type: 
  Country: None (occurrence: None)
  Receive Date: 20100114
  Receipt Date: 20100105
  Transmission Date: 20100710
  Serious: Yes (Other)
  Sender: FDA-Public Use
  Company Number: FR-CELGENEUS-056-21880-10010268

PATIENT
  Sex: Male

DRUGS (2)
  1. REVLIMID [Suspect]
     Route: 048
     Dates: start: 20091008, end: 20091021
  2. REVLIMID [Suspect]
     Route: 048
     Dates: start: 20091205

REACTIONS (5)
  - BLOOD COUNT ABNORMAL [None]
  - DEAFNESS UNILATERAL [None]
  - HEARING IMPAIRED [None]
  - NAUSEA [None]
  - VOMITING [None]
